FAERS Safety Report 5192108-0 (Version None)
Quarter: 2006Q4

REPORT INFORMATION
  Report Type: 
  Country: None (occurrence: None)
  Receive Date: 20061220
  Receipt Date: 20061204
  Transmission Date: 20070319
  Serious: Yes (Hospitalization)
  Sender: FDA-Public Use
  Company Number: 2006AP001077

PATIENT
  Sex: Female

DRUGS (1)
  1. CLOPIDOGREL [Suspect]
     Indication: POST PROCEDURAL STROKE
     Dosage: PO
     Route: 048
     Dates: start: 20060801, end: 20061101

REACTIONS (3)
  - DIARRHOEA [None]
  - FAECES DISCOLOURED [None]
  - HAEMORRHOIDAL HAEMORRHAGE [None]
